FAERS Safety Report 8978962 (Version 1)
Quarter: 2012Q4

REPORT INFORMATION
  Report Type: 
  Country: PE (occurrence: PE)
  Receive Date: 20121210
  Receipt Date: 20121210
  Transmission Date: 20130627
  Serious: Yes (Hospitalization)
  Sender: FDA-Public Use
  Company Number: PE-PFIZER INC-2012282551

PATIENT
  Age: 56 Year
  Sex: Male

DRUGS (3)
  1. LIPITOR [Suspect]
     Indication: HYPERCHOLESTEROLEMIA
     Dosage: UNK
     Route: 048
     Dates: end: 201211
  2. AMARYL [Concomitant]
     Indication: DIABETES MELLITUS
     Dosage: UNK
     Route: 048
  3. CLOPIDOGREL [Concomitant]
     Indication: ATHEROSCLEROSIS PROPHYLAXIS
     Dosage: UNK
     Route: 048

REACTIONS (1)
  - Foot amputation [Not Recovered/Not Resolved]
